FAERS Safety Report 9067663 (Version 5)
Quarter: 2014Q3

REPORT INFORMATION
  Report Type: Spontaneous
  Country: US (occurrence: US)
  Receive Date: 20130206
  Receipt Date: 20140804
  Transmission Date: 20150326
  Serious: Yes (Hospitalization)
  Sender: FDA-Public Use
  Company Number: US-009507513-1302USA001762

PATIENT
  Sex: Female
  Weight: 72.56 kg

DRUGS (1)
  1. NUVARING [Suspect]
     Active Substance: ETHINYL ESTRADIOL\ETONOGESTREL
     Indication: CONTRACEPTION
     Dosage: 0.12-0.015MG/24HR, PRN FOR 28 DAYS
     Route: 067
     Dates: start: 201107, end: 201207

REACTIONS (17)
  - Decreased appetite [Recovered/Resolved]
  - Anticoagulation drug level below therapeutic [Unknown]
  - Fatigue [Recovered/Resolved]
  - Headache [Recovered/Resolved]
  - Maternal exposure before pregnancy [Unknown]
  - Coagulopathy [Unknown]
  - Haematochezia [Recovering/Resolving]
  - Haemorrhage [Recovered/Resolved]
  - Lethargy [Recovered/Resolved]
  - Abdominal pain [Recovered/Resolved]
  - Back pain [Recovered/Resolved]
  - Dizziness [Recovered/Resolved]
  - Spinal osteoarthritis [Unknown]
  - Nausea [Recovered/Resolved]
  - Deep vein thrombosis [Unknown]
  - Sinusitis [Unknown]
  - Deep vein thrombosis [Not Recovered/Not Resolved]

NARRATIVE: CASE EVENT DATE: 201207
